FAERS Safety Report 8603517-9 (Version None)
Quarter: 2012Q3

REPORT INFORMATION
  Report Type: 
  Country: None (occurrence: None)
  Receive Date: 20120817
  Receipt Date: 20120813
  Transmission Date: 20120928
  Serious: Yes (Other)
  Sender: FDA-Public Use
  Company Number: US-PFIZER INC-2012172881

PATIENT
  Age: 74 Year
  Sex: Female
  Weight: 60.317 kg

DRUGS (6)
  1. PREMARIN [Suspect]
     Indication: VULVOVAGINAL DRYNESS
     Dosage: UNK
     Route: 048
  2. PREMARIN [Suspect]
     Indication: VULVOVAGINAL DRYNESS
     Dosage: 0.625 MG, 2X/DAY
     Route: 067
     Dates: start: 20120608
  3. PREMARIN [Suspect]
     Indication: VULVOVAGINAL DISCOMFORT
  4. OXYBUTYNIN [Suspect]
     Indication: URGE INCONTINENCE
     Dosage: UNK
  5. VAGIFEM [Suspect]
     Dosage: UNK
  6. TOVIAZ [Suspect]
     Indication: URGE INCONTINENCE
     Dosage: 4 MG, DAILY
     Route: 048
     Dates: start: 20120608

REACTIONS (8)
  - VULVOVAGINAL PAIN [None]
  - EXPIRED DRUG ADMINISTERED [None]
  - POLLAKIURIA [None]
  - VULVOVAGINAL DRYNESS [None]
  - DRUG INEFFECTIVE [None]
  - BLADDER PROLAPSE [None]
  - BLADDER SPASM [None]
  - DRUG DOSE OMISSION [None]
